FAERS Safety Report 7561898-1 (Version None)
Quarter: 2011Q2

REPORT INFORMATION
  Report Type: 
  Country: None (occurrence: None)
  Receive Date: 20110621
  Receipt Date: 20110608
  Transmission Date: 20111010
  Serious: Yes (Hospitalization, Other)
  Sender: FDA-Public Use
  Company Number: PHHY2011US18086

PATIENT
  Sex: Female
  Weight: 54.92 kg

DRUGS (13)
  1. BENADRYL [Concomitant]
  2. OXYCONTIN [Concomitant]
  3. DILAUDID [Concomitant]
  4. KEPPRA [Concomitant]
  5. ELAVIL [Concomitant]
  6. EXJADE [Suspect]
     Indication: SICKLE CELL ANAEMIA
     Dosage: 1000 MG, DAILY
     Route: 048
     Dates: start: 20110122
  7. EXJADE [Suspect]
     Indication: IRON OVERLOAD
  8. ZOFRAN [Concomitant]
  9. FOLIC ACID [Concomitant]
  10. ASPIRIN [Concomitant]
  11. FLEXERIL [Concomitant]
  12. CARDIZEM LA [Concomitant]
  13. TOPAMAX [Concomitant]

REACTIONS (6)
  - CONVULSION [None]
  - DIARRHOEA [None]
  - VOMITING [None]
  - ABDOMINAL PAIN UPPER [None]
  - SICKLE CELL ANAEMIA WITH CRISIS [None]
  - NAUSEA [None]
